FAERS Safety Report 9202732 (Version 1)
Quarter: 2013Q2

REPORT INFORMATION
  Report Type: Spontaneous
  Country: GB (occurrence: GB)
  Receive Date: 20130401
  Receipt Date: 20130401
  Transmission Date: 20140414
  Serious: Yes (Hospitalization)
  Sender: FDA-Public Use
  Company Number: GB-PFIZER INC-GB-WYE-G01395008

PATIENT
  Age: 46 Year
  Sex: Male

DRUGS (4)
  1. IBUPROFEN [Suspect]
     Dosage: DOSAGE FORM: UNSPECIFIED, UNKNOWN
  2. EFEXOR XL [Suspect]
     Indication: DEPRESSED MOOD
     Dosage: 75 MG, UNK
     Route: 048
  3. CO-CODAMOL [Concomitant]
     Route: 048
  4. PANADEINE CO [Concomitant]
     Route: 048

REACTIONS (3)
  - Photosensitivity reaction [Not Recovered/Not Resolved]
  - Erythrodermic psoriasis [Not Recovered/Not Resolved]
  - Condition aggravated [Not Recovered/Not Resolved]
